FAERS Safety Report 25985338 (Version 1)
Quarter: 2025Q4

REPORT INFORMATION
  Report Type: Spontaneous
  Country: US (occurrence: None)
  Receive Date: 20251031
  Receipt Date: 20251031
  Transmission Date: 20260118
  Serious: No
  Sender: FDA-CTU
  Company Number: None

PATIENT
  Age: 33 Year
  Sex: Male
  Weight: 86.4 kg

DRUGS (1)
  1. VIJOICE [Suspect]
     Active Substance: ALPELISIB
     Indication: Vascular malformation
     Dosage: FREQUENCY : DAILY;?
     Route: 048
     Dates: start: 20250919

REACTIONS (6)
  - Fatigue [None]
  - Asthenia [None]
  - Pollakiuria [None]
  - Pallor [None]
  - Dry throat [None]
  - Depression [None]

NARRATIVE: CASE EVENT DATE: 20251030
